FAERS Safety Report 15072745 (Version 1)
Quarter: 2018Q2

REPORT INFORMATION
  Report Type: Spontaneous
  Country: US (occurrence: US)
  Receive Date: 20180627
  Receipt Date: 20180627
  Transmission Date: 20180711
  Serious: No
  Sender: FDA-Public Use
  Company Number: US-APOTEX-2018AP014807

PATIENT
  Age: 89 Year
  Sex: Female

DRUGS (2)
  1. AZELASTINE HYDROCHLORIDE NASAL SOLUTION (NASAL SPRAY) [Suspect]
     Active Substance: AZELASTINE HYDROCHLORIDE
     Dosage: UNK UNK, Q.O.D.
     Route: 065
     Dates: start: 20171009
  2. AZELASTINE HYDROCHLORIDE NASAL SOLUTION (NASAL SPRAY) [Suspect]
     Active Substance: AZELASTINE HYDROCHLORIDE
     Indication: SINUS DISORDER
     Dosage: UNK UNK, QD
     Route: 045
     Dates: start: 20171009

REACTIONS (4)
  - Alopecia [Not Recovered/Not Resolved]
  - Inappropriate schedule of drug administration [Unknown]
  - Product substitution issue [Unknown]
  - Product label issue [Unknown]

NARRATIVE: CASE EVENT DATE: 2017
